FAERS Safety Report 13260140 (Version 1)
Quarter: 2017Q1

REPORT INFORMATION
  Report Type: Spontaneous
  Country: US (occurrence: US)
  Receive Date: 20170222
  Receipt Date: 20170222
  Transmission Date: 20170428
  Serious: No
  Sender: FDA-Public Use
  Company Number: US-TEVA-707390USA

PATIENT
  Sex: Female

DRUGS (3)
  1. AMPHETAMINE W/DEXTROAMPHETAMINE [Suspect]
     Active Substance: AMPHETAMINE SULFATE\DEXTROAMPHETAMINE
     Indication: ATTENTION DEFICIT/HYPERACTIVITY DISORDER
     Dosage: 0NE OF THE 10MG TABLET (FROM LAST MONTHS BOTTLE)
     Dates: start: 20160928
  2. AMPHETAMINE W/DEXTROAMPHETAMINE [Suspect]
     Active Substance: AMPHETAMINE SULFATE\DEXTROAMPHETAMINE
     Dates: start: 201605
  3. AMPHETAMINE W/DEXTROAMPHETAMINE [Suspect]
     Active Substance: AMPHETAMINE SULFATE\DEXTROAMPHETAMINE
     Dosage: 15 MG (1.5 TABLET) IN THE MORNING
     Dates: start: 20160927, end: 20160927

REACTIONS (10)
  - Disturbance in attention [Unknown]
  - Thirst [Recovered/Resolved]
  - Irritability [Unknown]
  - Headache [Recovered/Resolved]
  - Abdominal discomfort [Unknown]
  - Dry mouth [Recovered/Resolved]
  - Mydriasis [Recovered/Resolved]
  - Drug ineffective [Unknown]
  - Sluggishness [Unknown]
  - Intentional product use issue [Unknown]

NARRATIVE: CASE EVENT DATE: 201609
